FAERS Safety Report 16906254 (Version 1)
Quarter: 2019Q4

REPORT INFORMATION
  Report Type: Other
  Country: IT (occurrence: IT)
  Receive Date: 20191011
  Receipt Date: 20191011
  Transmission Date: 20200122
  Serious: Yes (Hospitalization)
  Sender: FDA-Public Use
  Company Number: IT-MACLEODS PHARMACEUTICALS US LTD-MAC2019023177

PATIENT

DRUGS (3)
  1. OLANZAPINE 10MG TABLETS [Suspect]
     Active Substance: OLANZAPINE
     Indication: PRODUCT USED FOR UNKNOWN INDICATION
     Dosage: 10 MILLIGRAM COATED TABLET, QD
     Route: 048
     Dates: start: 20190330, end: 20190401
  2. ARIPIPRAZOLE 5 MG TABLET [Suspect]
     Active Substance: ARIPIPRAZOLE
     Indication: PRODUCT USED FOR UNKNOWN INDICATION
     Dosage: 5 MILLIGRAM ORODISPERSIBLE TABLET, QD
     Route: 048
  3. QUETIAPINE 100MG TABLET [Suspect]
     Active Substance: QUETIAPINE
     Indication: PRODUCT USED FOR UNKNOWN INDICATION
     Dosage: 100 MILLIGRAM, QD
     Route: 048
     Dates: start: 20190330, end: 20190401

REACTIONS (2)
  - Pyrexia [Unknown]
  - Nuchal rigidity [Unknown]

NARRATIVE: CASE EVENT DATE: 20190401
